FAERS Safety Report 8908366 (Version 3)
Quarter: 2012Q4

REPORT INFORMATION
  Report Type: 
  Country: US (occurrence: US)
  Receive Date: 20121114
  Receipt Date: 20121128
  Transmission Date: 20130627
  Serious: Yes (Hospitalization)
  Sender: FDA-Public Use
  Company Number: US-ALEXION PHARMACEUTICALS INC.-A201202152

PATIENT
  Age: 23 Year
  Sex: Female
  Weight: 60.4 kg

DRUGS (5)
  1. SOLIRIS 300MG [Suspect]
     Indication: HAEMOLYTIC URAEMIC SYNDROME
     Dosage: 1200 mg, UNK
     Route: 042
     Dates: start: 20120920
  2. PREDNISONE [Concomitant]
     Dosage: 60 mg, UNK
  3. PREDNISONE [Concomitant]
     Dosage: 40 mg, UNK
  4. CIPRO [Concomitant]
     Indication: ANTIBIOTIC PROPHYLAXIS
     Dosage: UNK
  5. CELLCEPT [Concomitant]

REACTIONS (7)
  - Abdominal pain [Recovered/Resolved]
  - Nausea [Recovering/Resolving]
  - Vomiting [Recovered/Resolved]
  - Catheter site pain [Unknown]
  - Wound complication [Unknown]
  - Back pain [Unknown]
  - Constipation [Unknown]
